FAERS Safety Report 9314321 (Version 2)
Quarter: 2013Q3

REPORT INFORMATION
  Report Type: Spontaneous
  Country: NL (occurrence: NL)
  Receive Date: 20130529
  Receipt Date: 20130812
  Transmission Date: 20140515
  Serious: No
  Sender: FDA-Public Use
  Company Number: NL-TEVA-406916ISR

PATIENT
  Age: 56 Year
  Sex: Female
  Weight: 97 kg

DRUGS (2)
  1. TAMOXIFEN TABLET 40MG [Suspect]
     Indication: BREAST CANCER
     Dosage: ONE TIME DAILY ONE PIECE
     Route: 048
     Dates: start: 20120616, end: 20130501
  2. MULTIVITAMINEN + MINERALEN TABLET [Concomitant]
     Dosage: ONE TIME DAILY ONE PIECE
     Route: 048

REACTIONS (2)
  - Aggression [Recovered/Resolved]
  - Personality change [Recovered/Resolved]
